FAERS Safety Report 17216883 (Version 3)
Quarter: 2020Q1

REPORT INFORMATION
  Report Type: Report from Study
  Country: None (occurrence: US)
  Receive Date: 20191231
  Receipt Date: 20200206
  Transmission Date: 20200409
  Serious: Yes (Congenital Anomaly)
  Sender: FDA-Public Use
  Company Number: US-ABBVIE-19K-163-3209599-00

PATIENT
  Sex: Male
  Weight: 3.64 kg

DRUGS (4)
  1. TENOFOVIR DISOPROXIL FUMARATE + EMTRICITABINE [Suspect]
     Active Substance: EMTRICITABINE\TENOFOVIR DISOPROXIL FUMARATE
     Indication: MATERNAL EXPOSURE TIMING UNSPECIFIED
     Dosage: SECOND TRIMESTER
     Route: 064
  2. RETROVIR [Suspect]
     Active Substance: ZIDOVUDINE
     Indication: MATERNAL EXPOSURE TIMING UNSPECIFIED
     Dosage: THIRD TRIMESTER
     Route: 064
  3. RITONAVIR. [Suspect]
     Active Substance: RITONAVIR
     Indication: MATERNAL EXPOSURE TIMING UNSPECIFIED
     Dosage: SECOND TRIMESTER
     Route: 064
  4. ATAZANAVIR. [Suspect]
     Active Substance: ATAZANAVIR
     Indication: MATERNAL EXPOSURE TIMING UNSPECIFIED
     Dosage: SECOND TRIMESTER
     Route: 064

REACTIONS (5)
  - Genitalia external ambiguous [Unknown]
  - Hypospadias [Unknown]
  - Chordee [Unknown]
  - Foetal exposure during pregnancy [Unknown]
  - Gene mutation [Unknown]
